FAERS Safety Report 9356218 (Version 1)
Quarter: 2013Q2

REPORT INFORMATION
  Report Type: Spontaneous
  Country: JP (occurrence: JP)
  Receive Date: 20130619
  Receipt Date: 20130619
  Transmission Date: 20140414
  Serious: Yes (Hospitalization)
  Sender: FDA-Public Use
  Company Number: JP-GLAXOSMITHKLINE-B0899717A

PATIENT
  Age: 29 Year
  Sex: Female

DRUGS (4)
  1. LAMICTAL [Suspect]
     Indication: TEMPORAL LOBE EPILEPSY
     Dosage: 25MG TWICE PER DAY
     Route: 048
     Dates: start: 201302, end: 20130318
  2. SULPIRIDE [Concomitant]
     Dosage: 50MG TWICE PER DAY
     Route: 048
     Dates: start: 201302, end: 20130318
  3. TEGRETOL [Concomitant]
     Dosage: 200MG TWICE PER DAY
     Route: 048
     Dates: start: 201302, end: 20130318
  4. E KEPPRA [Concomitant]
     Dosage: 500MG TWICE PER DAY
     Route: 048
     Dates: start: 201302, end: 20130318

REACTIONS (2)
  - Renal failure acute [Recovered/Resolved]
  - Hyponatraemia [Recovered/Resolved]
